FAERS Safety Report 6764714-0 (Version None)
Quarter: 2010Q2

REPORT INFORMATION
  Report Type: 
  Country: None (occurrence: None)
  Receive Date: 20100610
  Receipt Date: 20100602
  Transmission Date: 20101027
  Serious: Yes (Hospitalization)
  Sender: FDA-Public Use
  Company Number: CA-PFIZER INC-2010070066

PATIENT
  Age: 68 Year
  Sex: Female

DRUGS (3)
  1. LIPITOR [Suspect]
     Dosage: 20 MG, 1X/DAY
     Route: 048
  2. CALCIUM CARBONATE [Concomitant]
     Dosage: UNK
  3. TYLENOL [Concomitant]
     Dosage: UNK

REACTIONS (7)
  - LEUKOCYTOSIS [None]
  - LUNG INFILTRATION [None]
  - NAUSEA [None]
  - PRURITUS [None]
  - PYREXIA [None]
  - RASH [None]
  - VOMITING [None]
